FAERS Safety Report 7250010-4 (Version None)
Quarter: 2011Q1

REPORT INFORMATION
  Report Type: 
  Country: None (occurrence: None)
  Receive Date: 20110128
  Receipt Date: 20110125
  Transmission Date: 20110831
  Serious: Yes (Hospitalization)
  Sender: FDA-Public Use
  Company Number: US-AMGEN-USACT2011004630

PATIENT
  Age: 77 Year
  Sex: Male
  Weight: 86 kg

DRUGS (3)
  1. PANITUMUMAB [Suspect]
     Indication: OESOPHAGEAL CARCINOMA
     Dosage: 336 MG, Q2WK
     Route: 042
  2. OXALIPLATIN [Suspect]
     Dosage: UNK
     Dates: start: 20101202
  3. CAPECITABINE [Suspect]
     Dosage: UNK
     Dates: start: 20101130

REACTIONS (3)
  - VOMITING [None]
  - DEHYDRATION [None]
  - OESOPHAGITIS [None]
